FAERS Safety Report 17563020 (Version 2)
Quarter: 2022Q1

REPORT INFORMATION
  Report Type: Spontaneous
  Country: CH (occurrence: CH)
  Receive Date: 20200319
  Receipt Date: 20220118
  Transmission Date: 20220423
  Serious: Yes (Life-Threatening, Hospitalization, Other)
  Sender: FDA-Public Use
  Company Number: CH-AMERICAN REGENT INC-2020000669

PATIENT
  Age: 48 Year
  Sex: Female

DRUGS (15)
  1. FERINJECT [Suspect]
     Active Substance: FERRIC CARBOXYMALTOSE
     Indication: Iron deficiency anaemia
     Dosage: 1000 MILLIGRAM, 1 ONCE
     Route: 042
     Dates: start: 20200124, end: 20200124
  2. TORSEMIDE [Suspect]
     Active Substance: TORSEMIDE
     Indication: Pleural effusion
     Dosage: 10 MILLIGRAM, (10 MG,1 IN 1 D)
     Route: 065
  3. MOTILIUM                           /00498201/ [Concomitant]
     Indication: Product used for unknown indication
     Dosage: 10 MILLIGRAM AS REQUIRED
     Route: 048
  4. SODIUM PICOSULFATE [Concomitant]
     Active Substance: SODIUM PICOSULFATE
     Indication: Product used for unknown indication
     Dosage: 1 DOSAGE FORMS, AS REQUIRED
     Route: 048
  5. PANTOPRAZOLE SODIUM [Concomitant]
     Active Substance: PANTOPRAZOLE SODIUM
     Indication: Product used for unknown indication
     Dosage: 40 MILLIGRAM, 1 IN MORNING, 1 IN EVENING
     Route: 048
  6. CALCIUM\CHOLECALCIFEROL [Concomitant]
     Active Substance: CALCIUM\CHOLECALCIFEROL
     Indication: Product used for unknown indication
     Dosage: 1 DOSAGE FORM, 1 IN MORNING
     Route: 048
  7. CEFPODOXIME PROXETIL [Concomitant]
     Active Substance: CEFPODOXIME PROXETIL
     Indication: Product used for unknown indication
     Dosage: 100 MILLIGRAM, 1 IN MORNING
     Route: 048
  8. NAPROXEN [Concomitant]
     Active Substance: NAPROXEN
     Indication: Product used for unknown indication
     Dosage: 500 MILLIGRAM, AS REQUIRED
     Route: 048
  9. NOVALGIN (METAMIZOLE SODIUM) [Concomitant]
     Active Substance: METAMIZOLE SODIUM
     Indication: Product used for unknown indication
     Dosage: 0.5 GRAM PER MILLILITRE,AS REQUIRED
     Route: 048
  10. CODEINE PHOSPHATE [Concomitant]
     Active Substance: CODEINE PHOSPHATE
     Indication: Product used for unknown indication
     Dosage: 50 MILLIGRAM,  AS REQUIRED
     Route: 048
  11. SPIRONOLACTONE [Concomitant]
     Active Substance: SPIRONOLACTONE
     Indication: Product used for unknown indication
     Dosage: 50 MG,1/2 IN AFTERNOON
     Route: 048
  12. FLATULEX                           /06269601/ [Concomitant]
     Indication: Product used for unknown indication
     Dosage: 42 MILLIGRAM,  AS REQUIRED
     Route: 048
  13. METOLAZONE [Concomitant]
     Active Substance: METOLAZONE
     Indication: Product used for unknown indication
     Dosage: 2.5 MILLIGRAM,1/2 IN AFTERNOON
     Route: 048
  14. MAGNEGON [Concomitant]
     Indication: Product used for unknown indication
     Dosage: 120 MILLIGRAM, 1 IN MORNING
     Route: 048
  15. KAFA PLUS KOFFEIN [Concomitant]
     Indication: Product used for unknown indication
     Dosage: 1 DOSAGE FORM, 1 AS REQUIRED
     Route: 048

REACTIONS (19)
  - Urine phosphorus increased [Recovering/Resolving]
  - Acute respiratory failure [Recovering/Resolving]
  - Hypokalaemia [Recovering/Resolving]
  - Pulmonary hypertension [Recovering/Resolving]
  - Hypoventilation [Recovering/Resolving]
  - Electrolyte imbalance [Recovered/Resolved]
  - Hypomagnesaemia [Recovered/Resolved]
  - Respiratory acidosis [Recovering/Resolving]
  - Respiratory disorder [Recovering/Resolving]
  - Heart valve incompetence [Recovering/Resolving]
  - Blood 1,25-dihydroxycholecalciferol decreased [Recovering/Resolving]
  - Adverse drug reaction [Recovering/Resolving]
  - Asthenia [Recovered/Resolved]
  - Metabolic alkalosis [Recovered/Resolved]
  - Insomnia [Recovering/Resolving]
  - General physical health deterioration [Recovering/Resolving]
  - Hypophosphataemia [Recovered/Resolved]
  - Dyspnoea [Recovered/Resolved]
  - Headache [Recovered/Resolved]

NARRATIVE: CASE EVENT DATE: 20200131
